FAERS Safety Report 7818716-3 (Version None)
Quarter: 2011Q4

REPORT INFORMATION
  Report Type: 
  Country: None (occurrence: None)
  Receive Date: 20111018
  Receipt Date: 20111012
  Transmission Date: 20120403
  Serious: No
  Sender: FDA-Public Use
  Company Number: US-BIOGENIDEC-2011BI024210

PATIENT
  Age: 60 Year
  Sex: Female

DRUGS (5)
  1. KEPPRA [Concomitant]
     Indication: CONVULSION PROPHYLAXIS
     Dates: start: 20100325
  2. TYSABRI [Suspect]
     Indication: MULTIPLE SCLEROSIS
     Route: 042
     Dates: start: 20110616
  3. LAMICTAL [Concomitant]
     Indication: CONVULSION PROPHYLAXIS
     Dates: start: 20100101
  4. KLONOPIN [Concomitant]
     Indication: SLEEP DISORDER
  5. GABAPENTIN [Concomitant]
     Indication: PAIN

REACTIONS (16)
  - FATIGUE [None]
  - ABDOMINAL PAIN UPPER [None]
  - TREMOR [None]
  - MUSCULAR WEAKNESS [None]
  - DEPRESSION [None]
  - ASTHENIA [None]
  - NAUSEA [None]
  - MEMORY IMPAIRMENT [None]
  - ABDOMINAL DISTENSION [None]
  - MOBILITY DECREASED [None]
  - PRURITUS [None]
  - DIARRHOEA [None]
  - DYSGRAPHIA [None]
  - PARAESTHESIA [None]
  - PAIN [None]
  - VEIN DISCOLOURATION [None]
